FAERS Safety Report 8119230-0 (Version None)
Quarter: 2011Q4

REPORT INFORMATION
  Report Type: 
  Country: None (occurrence: None)
  Receive Date: 20111227
  Receipt Date: 20111020
  Transmission Date: 20120403
  Serious: No
  Sender: FDA-Public Use
  Company Number: PHEH2011US05153

PATIENT
  Sex: Female

DRUGS (1)
  1. GILENYA [Suspect]

REACTIONS (7)
  - MALAISE [None]
  - FEELING ABNORMAL [None]
  - MUSCLE SPASMS [None]
  - DEPRESSION [None]
  - FATIGUE [None]
  - ARTHRALGIA [None]
  - WEIGHT INCREASED [None]
